FAERS Safety Report 16468131 (Version 1)
Quarter: 2019Q2

REPORT INFORMATION
  Report Type: Spontaneous
  Country: DK (occurrence: DK)
  Receive Date: 20190624
  Receipt Date: 20190624
  Transmission Date: 20190711
  Serious: Yes (Hospitalization)
  Sender: FDA-Public Use
  Company Number: PHHY2019DK141568

PATIENT
  Age: 38 Year
  Sex: Male
  Weight: 78.6 kg

DRUGS (1)
  1. COSENTYX [Suspect]
     Active Substance: SECUKINUMAB
     Indication: NAIL PSORIASIS
     Dosage: 300 MG, QMO
     Route: 058
     Dates: start: 20180709

REACTIONS (2)
  - Otitis media [Recovered/Resolved]
  - Tympanic membrane perforation [Recovered/Resolved]

NARRATIVE: CASE EVENT DATE: 20190404
